FAERS Safety Report 5726743-5 (Version None)
Quarter: 2008Q2

REPORT INFORMATION
  Report Type: 
  Country: None (occurrence: None)
  Receive Date: 20080502
  Receipt Date: 20080424
  Transmission Date: 20081010
  Serious: Yes (Hospitalization)
  Sender: FDA-Public Use
  Company Number: DE-ABBOTT-08P-062-0449070-00

PATIENT
  Sex: Female

DRUGS (2)
  1. HUMIRA [Suspect]
     Indication: CROHN'S DISEASE
     Route: 058
     Dates: start: 20080221, end: 20080221
  2. HUMIRA [Suspect]
     Route: 058
     Dates: start: 20080320, end: 20080320

REACTIONS (3)
  - COLONIC STENOSIS [None]
  - CROHN'S DISEASE [None]
  - URETERIC INJURY [None]
